FAERS Safety Report 7445185-8 (Version None)
Quarter: 2011Q2

REPORT INFORMATION
  Report Type: 
  Country: None (occurrence: None)
  Receive Date: 20110429
  Receipt Date: 20110418
  Transmission Date: 20111010
  Serious: Yes (Hospitalization)
  Sender: FDA-Public Use
  Company Number: CA-JNJFOC-20110409053

PATIENT
  Sex: Male
  Weight: 92.99 kg

DRUGS (2)
  1. ASPIRIN [Concomitant]
     Route: 065
  2. REMICADE [Suspect]
     Indication: CROHN'S DISEASE
     Dosage: 100 MG/10 ML
     Route: 042

REACTIONS (2)
  - ATRIAL FIBRILLATION [None]
  - ERYTHEMA [None]
